FAERS Safety Report 22383053 (Version 1)
Quarter: 2023Q2

REPORT INFORMATION
  Report Type: Spontaneous
  Country: US (occurrence: None)
  Receive Date: 20230526
  Receipt Date: 20230526
  Transmission Date: 20230722
  Serious: Yes (Disabling, Other)
  Sender: FDA-Public Use
  Company Number: None

PATIENT
  Age: 5 Year
  Sex: Female
  Weight: 15.75 kg

DRUGS (1)
  1. LANSOPRAZOLE [Suspect]
     Active Substance: LANSOPRAZOLE
     Indication: Gastrooesophageal reflux disease
     Dosage: OTHER QUANTITY : 1 TABLET(S);?FREQUENCY : DAILY;?
     Route: 048
     Dates: start: 20230517, end: 20230523

REACTIONS (7)
  - Anxiety [None]
  - Loss of personal independence in daily activities [None]
  - Abnormal behaviour [None]
  - Obsessive thoughts [None]
  - Fear of eating [None]
  - Fear [None]
  - Crying [None]

NARRATIVE: CASE EVENT DATE: 20230522
